FAERS Safety Report 8151123-5 (Version None)
Quarter: 2012Q1

REPORT INFORMATION
  Report Type: 
  Country: None (occurrence: None)
  Receive Date: 20120220
  Receipt Date: 20110610
  Transmission Date: 20120608
  Serious: Yes (Hospitalization)
  Sender: FDA-Public Use
  Company Number: US-GLAXOSMITHKLINE-A0934313A

PATIENT
  Age: 55 Year
  Sex: Male

DRUGS (1)
  1. AVANDIA [Suspect]
     Indication: DIABETES MELLITUS
     Dosage: 8MG TWICE PER DAY
     Route: 048
     Dates: start: 20050101, end: 20100101

REACTIONS (6)
  - DYSPNOEA [None]
  - DIZZINESS [None]
  - CARDIAC DISORDER [None]
  - PAIN [None]
  - HYPERTENSION [None]
  - CORONARY ARTERY OCCLUSION [None]
